FAERS Safety Report 5920852-3 (Version None)
Quarter: 2008Q4

REPORT INFORMATION
  Report Type: 
  Country: None (occurrence: None)
  Receive Date: 20081016
  Receipt Date: 20081009
  Transmission Date: 20090506
  Serious: Yes (Hospitalization, Other)
  Sender: FDA-Public Use
  Company Number: US-ELI_LILLY_AND_COMPANY-US200810002199

PATIENT
  Sex: Female

DRUGS (1)
  1. HUMALOG [Suspect]

REACTIONS (9)
  - ADVERSE DRUG REACTION [None]
  - BLOOD GLUCOSE DECREASED [None]
  - BLOOD GLUCOSE INCREASED [None]
  - ESCHERICHIA INFECTION [None]
  - HERPES ZOSTER [None]
  - HOSPITALISATION [None]
  - LOSS OF CONSCIOUSNESS [None]
  - LYMPHOMA [None]
  - METASTASIS [None]
